FAERS Safety Report 25960766 (Version 1)
Quarter: 2025Q4

REPORT INFORMATION
  Report Type: Spontaneous
  Country: JP (occurrence: JP)
  Receive Date: 20251027
  Receipt Date: 20251027
  Transmission Date: 20260119
  Serious: Yes (Death, Other)
  Sender: Vantive US Healthcare
  Company Number: JP-VANTIVE-2025VAN004403

PATIENT
  Age: 8 Decade
  Sex: Male

DRUGS (2)
  1. REGUNEAL LCA [Suspect]
     Active Substance: CALCIUM CHLORIDE\DEXTROSE MONOHYDRATE\HYDROCHLORIC ACID\MAGNESIUM CHLORIDE\SODIUM BICARBONATE\SODIUM
     Indication: Renal disorder
     Dosage: 1500 ML
     Route: 033
     Dates: start: 20240603
  2. EXTRANEAL [Suspect]
     Active Substance: CALCIUM CHLORIDE\ICODEXTRIN\MAGNESIUM CHLORIDE\SODIUM CHLORIDE\SODIUM LACTATE
     Indication: Renal disorder
     Dosage: 1500 ML
     Route: 033
     Dates: start: 20240726, end: 20250831

REACTIONS (4)
  - Diabetic foot [Fatal]
  - Diabetic gangrene [Fatal]
  - Condition aggravated [Fatal]
  - Sepsis [Fatal]
